FAERS Safety Report 14380380 (Version 2)
Quarter: 2018Q1

REPORT INFORMATION
  Report Type: Spontaneous
  Country: CN (occurrence: CN)
  Receive Date: 20180112
  Receipt Date: 20180305
  Transmission Date: 20180509
  Serious: Yes (Death, Hospitalization)
  Sender: FDA-Public Use
  Company Number: CN-PFIZER INC-2018015778

PATIENT
  Age: 87 Year
  Sex: Male

DRUGS (2)
  1. MEPEM [Suspect]
     Active Substance: MEROPENEM
     Indication: LUNG INFECTION
     Dosage: 3 G, 3X/DAY (DISSOLVED TO 0.9% NS 100ML) (Q8H)
     Route: 042
     Dates: start: 20171111, end: 20171120
  2. SULPERAZON [Suspect]
     Active Substance: CEFOPERAZONE SODIUM\SULBACTAM SODIUM
     Indication: LUNG INFECTION
     Dosage: 3 G, 3X/DAY (DISSOLVED TO 0.9% NS 100ML)(Q8H)
     Route: 041
     Dates: start: 20171111, end: 20171120

REACTIONS (2)
  - Coagulopathy [Unknown]
  - Gingival bleeding [Unknown]

NARRATIVE: CASE EVENT DATE: 20171119
